FAERS Safety Report 4732679-9 (Version None)
Quarter: 2005Q3

REPORT INFORMATION
  Report Type: 
  Country: None (occurrence: None)
  Receive Date: 20050803
  Receipt Date: 20050715
  Transmission Date: 20060218
  Serious: Yes (Hospitalization, Other)
  Sender: FDA-Public Use
  Company Number: PHEH2005US07948

PATIENT
  Sex: Male

DRUGS (2)
  1. TOFRANIL [Suspect]
     Indication: DEPRESSION
     Dosage: 50 MG, BID
     Dates: start: 19560101
  2. LEVOXYL [Suspect]
     Dosage: 50 UG, UNK

REACTIONS (4)
  - DRUG INTERACTION [None]
  - FALL [None]
  - HEAD INJURY [None]
  - SYNCOPE [None]
